FAERS Safety Report 8707626 (Version 2)
Quarter: 2013Q4

REPORT INFORMATION
  Report Type: Spontaneous
  Country: US (occurrence: US)
  Receive Date: 20120805
  Receipt Date: 20131101
  Transmission Date: 20140711
  Serious: No
  Sender: FDA-Public Use
  Company Number: US-009507513-1207USA007600

PATIENT
  Sex: Female

DRUGS (1)
  1. TIMOPTIC [Suspect]
     Dosage: 2 DROPS, QD
     Route: 047

REACTIONS (3)
  - Mood altered [Unknown]
  - Drug hypersensitivity [Unknown]
  - Chest discomfort [Unknown]
